FAERS Safety Report 16588124 (Version 4)
Quarter: 2020Q4

REPORT INFORMATION
  Report Type: Spontaneous
  Country: FR (occurrence: FR)
  Receive Date: 20190717
  Receipt Date: 20201209
  Transmission Date: 20210113
  Serious: Yes (Hospitalization, Other)
  Sender: FDA-Public Use
  Company Number: PHHY2019FR165734

PATIENT
  Age: 56 Year
  Sex: Female

DRUGS (6)
  1. DOLIPRANE [Concomitant]
     Active Substance: ACETAMINOPHEN
     Indication: PAIN
     Dosage: 1000 MG, UNKNOWN
     Route: 048
  2. COSENTYX [Suspect]
     Active Substance: SECUKINUMAB
     Indication: ANKYLOSING SPONDYLITIS
     Dosage: 150 MG, QMO
     Route: 058
     Dates: start: 20190215, end: 20190514
  3. ARCOXIA [Concomitant]
     Active Substance: ETORICOXIB
     Indication: PAIN
     Dosage: 30 MG, UNKNOWN
     Route: 048
  4. METFORMINE [Concomitant]
     Active Substance: METFORMIN HYDROCHLORIDE
     Indication: DIABETES MELLITUS
     Dosage: 500 MG, BID (MORNING AND EVENING)
     Route: 048
  5. OMEPRAZOLE. [Concomitant]
     Active Substance: OMEPRAZOLE
     Indication: PRODUCT USED FOR UNKNOWN INDICATION
     Dosage: 20 MG, QD (MORNING)
     Route: 065
  6. PINAVERIUM [Concomitant]
     Active Substance: PINAVERIUM BROMIDE
     Indication: PRODUCT USED FOR UNKNOWN INDICATION
     Dosage: 100 MG, BID (MORNING AND EVENING)
     Route: 065

REACTIONS (19)
  - C-reactive protein abnormal [Recovering/Resolving]
  - Decreased appetite [Unknown]
  - Crohn^s disease [Unknown]
  - Condition aggravated [Unknown]
  - Gastrointestinal disorder [Unknown]
  - Faecal calprotectin increased [Recovering/Resolving]
  - COVID-19 [Unknown]
  - Chills [Recovering/Resolving]
  - Diarrhoea [Recovering/Resolving]
  - Cough [Unknown]
  - Enteritis [Recovering/Resolving]
  - Pyrexia [Recovering/Resolving]
  - Abdominal pain [Recovering/Resolving]
  - Asthenia [Recovering/Resolving]
  - Spondylitis [Unknown]
  - Weight decreased [Recovering/Resolving]
  - Nausea [Recovered/Resolved]
  - General physical health deterioration [Recovering/Resolving]
  - Appendicitis [Unknown]

NARRATIVE: CASE EVENT DATE: 201902
